FAERS Safety Report 5280441-3 (Version None)
Quarter: 2007Q1

REPORT INFORMATION
  Report Type: 
  Country: None (occurrence: None)
  Receive Date: 20070329
  Receipt Date: 20070315
  Transmission Date: 20070707
  Serious: Yes (Hospitalization)
  Sender: FDA-Public Use
  Company Number: JP-AVENTIS-200710386JP

PATIENT
  Age: 66 Year
  Sex: Male

DRUGS (5)
  1. FUROSEMIDE [Suspect]
     Indication: OEDEMA
     Dates: start: 20030201
  2. DIURETICS [Suspect]
     Indication: OEDEMA
  3. PIRETANIDE [Suspect]
     Indication: OEDEMA
  4. TORSEMIDE [Suspect]
     Indication: OEDEMA
  5. LEVOTHYROXINE SODIUM [Concomitant]
     Indication: HYPOTHYROIDISM

REACTIONS (5)
  - CONDITION AGGRAVATED [None]
  - DRUG INEFFECTIVE [None]
  - MALABSORPTION [None]
  - RADIATION INJURY [None]
  - VITAMIN B1 DEFICIENCY [None]
